FAERS Safety Report 8211621-2 (Version None)
Quarter: 2012Q1

REPORT INFORMATION
  Report Type: 
  Country: None (occurrence: None)
  Receive Date: 20120315
  Receipt Date: 20120307
  Transmission Date: 20120608
  Serious: Yes (Hospitalization)
  Sender: FDA-Public Use
  Company Number: AU-JNJFOC-20111100075

PATIENT
  Sex: Male
  Weight: 82.95 kg

DRUGS (17)
  1. ALLOPURINOL [Concomitant]
     Indication: GOUT
     Route: 048
     Dates: start: 19991101
  2. ACETYLSALICYLIC ACID SRT [Concomitant]
     Indication: ISCHAEMIC HEART DISEASE PROPHYLAXIS
     Route: 048
  3. RAMIPRIL [Concomitant]
     Indication: DEVICE MALFUNCTION
     Route: 048
     Dates: start: 20091201
  4. GOSERELIN ACETATE [Concomitant]
     Route: 058
     Dates: start: 20090910
  5. GLICLAZIDE [Concomitant]
     Indication: TYPE 2 DIABETES MELLITUS
     Route: 048
     Dates: start: 20091201, end: 20111031
  6. METFORMIN HCL [Concomitant]
     Indication: TYPE 2 DIABETES MELLITUS
     Route: 048
     Dates: start: 20100601, end: 20111030
  7. WARFARIN SODIUM [Concomitant]
     Indication: ATRIAL FIBRILLATION
     Route: 048
     Dates: start: 20000101, end: 20111001
  8. AMIODARONE HYDROCHLORIDE [Concomitant]
     Indication: DEVICE MALFUNCTION
     Route: 048
     Dates: start: 20091201
  9. GOSERELIN ACETATE [Concomitant]
     Indication: PROSTATE CANCER
     Route: 058
     Dates: start: 20080701
  10. SIMVASTATIN [Concomitant]
     Indication: HYPERCHOLESTEROLAEMIA
     Route: 048
     Dates: start: 19991101
  11. VASELINE [Concomitant]
     Indication: LIP ULCERATION
     Route: 061
     Dates: start: 20110927
  12. PREDNISONE TAB [Suspect]
     Indication: PROSTATE CANCER METASTATIC
     Route: 048
     Dates: start: 20090910
  13. BISOPROLOL FUMARATE [Concomitant]
     Indication: DEVICE MALFUNCTION
     Route: 048
     Dates: start: 20091201
  14. ABIRATERONE ACETATE [Suspect]
     Indication: PROSTATE CANCER METASTATIC
     Route: 048
     Dates: start: 20090910, end: 20111030
  15. ABIRATERONE ACETATE [Suspect]
     Route: 048
     Dates: start: 20111201
  16. WARFARIN SODIUM [Concomitant]
     Indication: CEREBROVASCULAR ACCIDENT
     Route: 048
     Dates: start: 20000101, end: 20111001
  17. AMIODARONE HYDROCHLORIDE [Concomitant]
     Indication: ARRHYTHMIA
     Route: 048
     Dates: start: 20091201

REACTIONS (1)
  - ARTHRITIS BACTERIAL [None]
